FAERS Safety Report 14748253 (Version 1)
Quarter: 2018Q2

REPORT INFORMATION
  Report Type: Report from Study
  Country: None (occurrence: JP)
  Receive Date: 20180411
  Receipt Date: 20180411
  Transmission Date: 20180711
  Serious: Yes (Hospitalization)
  Sender: FDA-Public Use
  Company Number: JP-ABBVIE-18P-087-2314794-00

PATIENT
  Sex: Male

DRUGS (1)
  1. MAVIRET [Suspect]
     Active Substance: GLECAPREVIR\PIBRENTASVIR
     Indication: HEPATITIS C
     Route: 048
     Dates: start: 2018

REACTIONS (14)
  - Arthralgia [Unknown]
  - Renal impairment [Unknown]
  - Nasopharyngitis [Unknown]
  - Fatigue [Unknown]
  - Dehydration [Unknown]
  - Ear pain [Unknown]
  - C-reactive protein increased [Unknown]
  - Platelet count decreased [Unknown]
  - Dyspnoea [Unknown]
  - Blood uric acid increased [Unknown]
  - Oropharyngeal pain [Unknown]
  - Depressed mood [Unknown]
  - Nausea [Unknown]
  - Eosinophil count increased [Unknown]

NARRATIVE: CASE EVENT DATE: 201803
